FAERS Safety Report 5612999-6 (Version None)
Quarter: 2008Q1

REPORT INFORMATION
  Report Type: 
  Country: None (occurrence: None)
  Receive Date: 20080204
  Receipt Date: 20080108
  Transmission Date: 20080703
  Serious: Yes (Other)
  Sender: FDA-Public Use
  Company Number: US-PFIZER INC-2007099236

PATIENT
  Sex: Female

DRUGS (4)
  1. CHANTIX [Suspect]
     Indication: NICOTINE DEPENDENCE
     Dates: start: 20071016, end: 20071206
  2. CHANTIX [Suspect]
     Indication: SMOKING CESSATION THERAPY
  3. GEODON [Concomitant]
     Dosage: DAILY DOSE:120MG
  4. LEXAPRO [Concomitant]

REACTIONS (6)
  - COGNITIVE DISORDER [None]
  - DEPRESSIVE SYMPTOM [None]
  - EMOTIONAL DISORDER [None]
  - INSOMNIA [None]
  - PARANOIA [None]
  - PSYCHOTIC DISORDER [None]
